FAERS Safety Report 6846994-6 (Version None)
Quarter: 2010Q3

REPORT INFORMATION
  Report Type: 
  Country: None (occurrence: None)
  Receive Date: 20100714
  Receipt Date: 20100630
  Transmission Date: 20110219
  Serious: Yes (Other)
  Sender: FDA-Public Use
  Company Number: ACO_01275_2010

PATIENT
  Sex: Male

DRUGS (4)
  1. AMPYRA [Suspect]
     Indication: ADRENOLEUKODYSTROPHY
     Dosage: DF ORAL
     Route: 048
  2. FLORINEF [Concomitant]
  3. HYDROCORTISONE [Concomitant]
  4. MULTI-VITAMINS [Concomitant]

REACTIONS (6)
  - AGNOSIA [None]
  - BLINDNESS [None]
  - CONVULSION [None]
  - MUSCLE TWITCHING [None]
  - PRODUCT SUBSTITUTION ISSUE [None]
  - THERAPEUTIC RESPONSE UNEXPECTED [None]
